FAERS Safety Report 5661369-3 (Version None)
Quarter: 2008Q1

REPORT INFORMATION
  Report Type: 
  Country: None (occurrence: None)
  Receive Date: 20080312
  Receipt Date: 20080229
  Transmission Date: 20080703
  Serious: Yes (Other)
  Sender: FDA-Public Use
  Company Number: US-JNJFOC-20080300756

PATIENT
  Sex: Female

DRUGS (6)
  1. DITROPAN [Suspect]
     Indication: INCONTINENCE
     Route: 065
  2. REBIF [Suspect]
     Indication: MULTIPLE SCLEROSIS
     Route: 058
  3. NEURONTIN [Suspect]
     Indication: MULTIPLE SCLEROSIS
     Route: 065
  4. PROVIGIL [Suspect]
     Indication: FATIGUE
     Route: 065
  5. CRESTOR [Suspect]
     Indication: BLOOD CHOLESTEROL INCREASED
     Route: 065
  6. GLUCOVANCE [Suspect]
     Indication: DIABETES MELLITUS
     Route: 065

REACTIONS (2)
  - DRUG EXPOSURE DURING PREGNANCY [None]
  - PREMATURE LABOUR [None]
